FAERS Safety Report 8184829-2 (Version None)
Quarter: 2012Q1

REPORT INFORMATION
  Report Type: 
  Country: None (occurrence: None)
  Receive Date: 20120305
  Receipt Date: 20120227
  Transmission Date: 20120608
  Serious: Yes (Other)
  Sender: FDA-Public Use
  Company Number: CH-BRISTOL-MYERS SQUIBB COMPANY-16419939

PATIENT
  Age: 64 Year
  Sex: Female

DRUGS (3)
  1. SPRYCEL [Suspect]
     Indication: CHRONIC MYELOID LEUKAEMIA
     Route: 048
  2. NEXIUM [Concomitant]
     Dosage: ONE TABLET
  3. ASPIRIN [Concomitant]

REACTIONS (1)
  - ENDOMETRIAL CANCER [None]
